FAERS Safety Report 9718096 (Version 2)
Quarter: 2013Q4

REPORT INFORMATION
  Report Type: Spontaneous
  Country: US (occurrence: US)
  Receive Date: 20131125
  Receipt Date: 20131125
  Transmission Date: 20140711
  Serious: No
  Sender: FDA-Public Use
  Company Number: US-VIVUS-2013V1000246

PATIENT
  Age: 56 Year
  Sex: Male

DRUGS (1)
  1. QSYMIA 11.25MG/69MG [Suspect]
     Indication: PRODUCT USED FOR UNKNOWN INDICATION
     Dosage: DAILY DOSE: 1 CAPSULE,
     Route: 048
     Dates: start: 201303, end: 201303

REACTIONS (1)
  - Tinnitus [Unknown]
